FAERS Safety Report 25360319 (Version 1)
Quarter: 2025Q2

REPORT INFORMATION
  Report Type: Spontaneous
  Country: AU (occurrence: AU)
  Receive Date: 20250527
  Receipt Date: 20250527
  Transmission Date: 20250716
  Serious: Yes (Hospitalization, Other)
  Sender: CIPLA
  Company Number: AU-CIPLA LTD.-2025AU06180

PATIENT

DRUGS (1)
  1. PREGABALIN [Suspect]
     Active Substance: PREGABALIN
     Indication: Pain in extremity
     Dosage: 25 MILLIGRAM, BID
     Route: 065
     Dates: start: 20250116, end: 20250122

REACTIONS (3)
  - Blood urea increased [Unknown]
  - Myoclonus [Unknown]
  - Delirium [Unknown]

NARRATIVE: CASE EVENT DATE: 20250121
